FAERS Safety Report 5096672-1 (Version None)
Quarter: 2006Q3

REPORT INFORMATION
  Report Type: 
  Country: None (occurrence: None)
  Receive Date: 20060831
  Receipt Date: 20060822
  Transmission Date: 20061208
  Serious: Yes (Hospitalization)
  Sender: FDA-Public Use
  Company Number: OSCN-NO-0608S-0244

PATIENT
  Sex: Male

DRUGS (1)
  1. OMNISCAN [Suspect]
     Indication: ACOUSTIC NEURITIS
     Dosage: SINGLE DOSE

REACTIONS (3)
  - BLOOD PRESSURE FLUCTUATION [None]
  - CHILLS [None]
  - PYREXIA [None]
